FAERS Safety Report 14527669 (Version 1)
Quarter: 2018Q1

REPORT INFORMATION
  Report Type: Spontaneous
  Country: US (occurrence: US)
  Receive Date: 20180213
  Receipt Date: 20180213
  Transmission Date: 20180509
  Serious: No
  Sender: FDA-Public Use
  Company Number: US-MITSUBISHI TANABE PHARMA CORPORATION-MPE2018-0001038

PATIENT
  Age: 59 Year
  Sex: Male

DRUGS (2)
  1. RADICAVA [Suspect]
     Active Substance: EDARAVONE
     Indication: AMYOTROPHIC LATERAL SCLEROSIS
     Route: 042
     Dates: start: 20180111, end: 20180124
  2. RADICAVA [Suspect]
     Active Substance: EDARAVONE
     Route: 042

REACTIONS (2)
  - No adverse event [Recovered/Resolved]
  - Incorrect dose administered [Recovered/Resolved]
